FAERS Safety Report 5921224-8 (Version None)
Quarter: 2008Q4

REPORT INFORMATION
  Report Type: 
  Country: None (occurrence: None)
  Receive Date: 20081016
  Receipt Date: 20080821
  Transmission Date: 20090506
  Serious: No
  Sender: FDA-Public Use
  Company Number: US-B.I. PHARMACEUTICALS,INC./RIDGEFIELD-2008-BP-10929BP

PATIENT
  Sex: Female

DRUGS (12)
  1. SPIRIVA [Suspect]
     Indication: ASTHMA
     Dosage: 18MCG
     Route: 055
     Dates: start: 20080501
  2. XOPENEX [Concomitant]
     Indication: ASTHMA
     Route: 048
     Dates: start: 20080701
  3. XOPENEX [Concomitant]
     Route: 048
     Dates: start: 20080101
  4. ZYRTEC [Concomitant]
     Indication: ASTHMA
     Dosage: 10MG
     Route: 048
     Dates: start: 20080701
  5. ATENOLOL [Concomitant]
     Indication: HYPERTENSION
     Dosage: 50MG
     Route: 048
     Dates: start: 19950101
  6. JANUMET [Concomitant]
     Indication: DIABETES MELLITUS
     Dosage: 50MG
     Route: 048
     Dates: start: 20070101
  7. EFFEXOR [Concomitant]
     Indication: DEPRESSION
     Dosage: 75MG
     Route: 048
     Dates: start: 20000101
  8. PAXIL [Concomitant]
     Indication: DEPRESSION
     Route: 048
     Dates: start: 20000101
  9. XANAX [Concomitant]
     Indication: ANXIETY
     Dosage: 4MG
     Route: 048
     Dates: start: 19810101
  10. NEXIUM [Concomitant]
     Indication: GASTROOESOPHAGEAL REFLUX DISEASE
     Dosage: 80MG
     Route: 048
     Dates: start: 20010101
  11. REMERON [Concomitant]
  12. ASMANEX TWISTHALER [Concomitant]

REACTIONS (1)
  - CYSTITIS [None]
